FAERS Safety Report 6242161-8 (Version None)
Quarter: 2009Q2

REPORT INFORMATION
  Report Type: 
  Country: None (occurrence: None)
  Receive Date: 20090622
  Receipt Date: 20090622
  Transmission Date: 20091009
  Serious: Yes (Other)
  Sender: FDA-Public Use
  Company Number: None

PATIENT

DRUGS (1)
  1. SODIUM FLUORIDE DROPS 0.5MG / 1ML HI-TECH PHARMACAL CO., INC. [Suspect]
     Indication: DRUG THERAPY
     Dosage: 0.25MG DAILY PO NEWLY DISPENSED RX
     Route: 048
     Dates: start: 20090619, end: 20090619

REACTIONS (2)
  - DRUG LABEL CONFUSION [None]
  - MEDICATION ERROR [None]
